FAERS Safety Report 9296009 (Version 2)
Quarter: 2013Q2

REPORT INFORMATION
  Report Type: Spontaneous
  Country: IT (occurrence: None)
  Receive Date: 20130422
  Receipt Date: 20130422
  Transmission Date: 20140414
  Serious: Yes (Hospitalization)
  Sender: FDA-Public Use
  Company Number: IT-2013-0571

PATIENT
  Age: 69 Year
  Sex: Female
  Weight: 52 kg

DRUGS (4)
  1. NAVELBINE [Suspect]
     Indication: B-CELL LYMPHOMA
     Route: 042
     Dates: start: 20130211, end: 20130211
  2. HOLOXAN [Suspect]
     Indication: B-CELL LYMPHOMA
     Dosage: 3.75 MG/KG, CYCLICAL (1/21), INTRAVENOUS
     Route: 042
  3. ACICLOVIR [Concomitant]
  4. OMEPRAZOLE [Concomitant]

REACTIONS (5)
  - Hallucination, visual [None]
  - Psychomotor retardation [None]
  - Psychomotor skills impaired [None]
  - Blood creatinine increased [None]
  - Depressed level of consciousness [None]
